FAERS Safety Report 13965930 (Version 1)
Quarter: 2017Q3

REPORT INFORMATION
  Report Type: Report from Study
  Country: FR (occurrence: FR)
  Receive Date: 20170913
  Receipt Date: 20170913
  Transmission Date: 20171128
  Serious: Yes (Other)
  Sender: FDA-Public Use
  Company Number: FR-PFIZER INC-2017220841

PATIENT
  Age: 65 Year
  Sex: Male
  Weight: 78 kg

DRUGS (16)
  1. MYLOTARG [Suspect]
     Active Substance: GEMTUZUMAB OZOGAMICIN
     Dosage: 5 MG, CYCLIC (ON D1 AND D4)
     Route: 042
     Dates: start: 20170418
  2. ZELITREX [Suspect]
     Active Substance: VALACYCLOVIR HYDROCHLORIDE
     Indication: PROPHYLAXIS
     Dosage: 500 MG, TWICE A DAY
     Route: 048
     Dates: start: 20170406, end: 20170514
  3. CYTARABINE. [Suspect]
     Active Substance: CYTARABINE
     Indication: ACUTE MYELOID LEUKAEMIA
     Dosage: D1 OF INDUCTION
     Dates: start: 20170329
  4. HEPARIN [Concomitant]
     Active Substance: HEPARIN SODIUM
     Indication: PROPHYLAXIS
     Dosage: 7500 IU, DAILY
     Route: 042
     Dates: start: 20170415
  5. MYLOTARG [Suspect]
     Active Substance: GEMTUZUMAB OZOGAMICIN
     Indication: ACUTE MYELOID LEUKAEMIA
     Dosage: D1 OF INDUCTION
     Route: 042
     Dates: start: 20170329
  6. IMOVANE [Suspect]
     Active Substance: ZOPICLONE
     Indication: INSOMNIA
     Dosage: 7.5 MG, DAILY
     Route: 048
     Dates: start: 20170419, end: 20170514
  7. TAZOCILLINE [Concomitant]
     Active Substance: PIPERACILLIN SODIUM\TAZOBACTAM SODIUM
     Indication: PYREXIA
     Dosage: 4 G, THRICE A DAY
     Route: 042
     Dates: start: 20170425, end: 20170513
  8. ZOPHREN /00955301/ [Concomitant]
     Active Substance: ONDANSETRON
     Indication: NAUSEA
     Dosage: 8 MG, TWICE A DAY
     Route: 042
     Dates: start: 20170418, end: 20170514
  9. CYTARABINE. [Suspect]
     Active Substance: CYTARABINE
     Dosage: 360 MG, DAILY, CYCLIC (FROM D1 TO D7)
     Dates: start: 20170418
  10. GRANOCYTE [Concomitant]
     Active Substance: LENOGRASTIM
     Indication: APLASIA
     Dosage: 34 IU, DAILY
     Route: 042
     Dates: start: 20170424, end: 20170511
  11. GAVISCON /00237601/ [Concomitant]
     Active Substance: ALUMINUM HYDROXIDE\MAGNESIUM CARBONATE
     Indication: GASTROOESOPHAGEAL REFLUX DISEASE
     Dosage: 3 BAGS, DAILY
     Route: 048
     Dates: start: 20170406
  12. CIFLOX [Suspect]
     Active Substance: CIPROFLOXACIN
     Indication: PYREXIA
     Dosage: 400 MG, TWICE A DAY
     Route: 042
     Dates: start: 20170510, end: 20170513
  13. EUPANTOL [Suspect]
     Active Substance: PANTOPRAZOLE SODIUM
     Indication: GASTROOESOPHAGEAL REFLUX DISEASE
     Dosage: 40 MG, DAILY
     Route: 048
     Dates: start: 20170406, end: 20170510
  14. TARGOCID [Concomitant]
     Active Substance: TEICOPLANIN
     Indication: PYREXIA
     Dosage: 400 MG, TWICE A DAY
     Route: 042
     Dates: start: 20170511
  15. PRIMPERAN [Concomitant]
     Active Substance: METOCLOPRAMIDE HYDROCHLORIDE
     Indication: NAUSEA
     Dosage: 3 AMPOULES, DAILY
     Route: 042
     Dates: start: 20170420
  16. ACUPAN [Concomitant]
     Active Substance: NEFOPAM HYDROCHLORIDE
     Indication: PAIN
     Dosage: 6 AMPOULES, DAILY
     Route: 042
     Dates: start: 20170509, end: 20170515

REACTIONS (2)
  - Pancreatitis [Recovered/Resolved]
  - Hepatotoxicity [Not Recovered/Not Resolved]

NARRATIVE: CASE EVENT DATE: 20170413
